FAERS Safety Report 7121027-5 (Version None)
Quarter: 2010Q4

REPORT INFORMATION
  Report Type: 
  Country: None (occurrence: None)
  Receive Date: 20101124
  Receipt Date: 20101116
  Transmission Date: 20110411
  Serious: Yes (Other)
  Sender: FDA-Public Use
  Company Number: DE-CEPHALON-2010005992

PATIENT
  Sex: Female

DRUGS (8)
  1. FENTANYL CITRATE [Suspect]
     Indication: PAIN
     Route: 002
     Dates: start: 20100201
  2. OXYCODONE HCL [Concomitant]
     Route: 048
  3. SEVREDOL [Concomitant]
  4. METAMIZOL [Concomitant]
  5. CELEBREX [Concomitant]
  6. FLUOXETINE HCL [Concomitant]
  7. THOMAPYRIN [Concomitant]
  8. IMMEDIATE RELEASE MORPHINE [Concomitant]
     Indication: BREAKTHROUGH PAIN

REACTIONS (3)
  - DIZZINESS [None]
  - DRUG PRESCRIBING ERROR [None]
  - UNEVALUABLE EVENT [None]
